FAERS Safety Report 12846160 (Version 1)
Quarter: 2016Q4

REPORT INFORMATION
  Report Type: Other
  Country: GB (occurrence: GB)
  Receive Date: 20161014
  Receipt Date: 20161014
  Transmission Date: 20170207
  Serious: Yes (Hospitalization)
  Sender: FDA-Public Use
  Company Number: GB-LUPIN PHARMACEUTICALS INC.-E2B_00004937

PATIENT
  Age: 47 Year
  Sex: Female

DRUGS (2)
  1. LISINOPRIL. [Suspect]
     Active Substance: LISINOPRIL
     Route: 048
     Dates: start: 20160206
  2. LISINOPRIL. [Suspect]
     Active Substance: LISINOPRIL
     Indication: HYPERTENSION
     Route: 048

REACTIONS (1)
  - Lip swelling [Recovered/Resolved]

NARRATIVE: CASE EVENT DATE: 20160206
